FAERS Safety Report 10749454 (Version 2)
Quarter: 2015Q1

REPORT INFORMATION
  Report Type: Spontaneous
  Country: US (occurrence: US)
  Receive Date: 20150129
  Receipt Date: 20150304
  Transmission Date: 20150721
  Serious: Yes (Other)
  Sender: FDA-Public Use
  Company Number: US-TEVA-536762USA

PATIENT
  Age: 52 Year
  Sex: Female
  Weight: 59.02 kg

DRUGS (2)
  1. PROAIR HFA [Suspect]
     Active Substance: ALBUTEROL SULFATE
     Indication: ASTHMA
     Dosage: 2-3X DAILY TO 4 TIMES AS NEEDED
     Route: 048
     Dates: start: 20150117
  2. LEVOXYL [Concomitant]
     Active Substance: LEVOTHYROXINE SODIUM
     Indication: THYROID THERAPY
     Route: 065

REACTIONS (6)
  - Unevaluable event [Unknown]
  - Hallucination [Unknown]
  - Suicidal ideation [Unknown]
  - Lethargy [Unknown]
  - Heart rate increased [Unknown]
  - Activities of daily living impaired [Unknown]

NARRATIVE: CASE EVENT DATE: 20150117
